FAERS Safety Report 8881972 (Version 1)
Quarter: 2012Q4

REPORT INFORMATION
  Report Type: 
  Country: GB (occurrence: GB)
  Receive Date: 20121101
  Receipt Date: 20121101
  Transmission Date: 20130627
  Serious: Yes (Other)
  Sender: FDA-Public Use
  Company Number: PHHY2012GB097213

PATIENT
  Sex: Female

DRUGS (7)
  1. CO-CODAMOL [Suspect]
     Dosage: 2 DF, QID
  2. CO-CODAMOL [Suspect]
     Dosage: 1 DF, QID
     Route: 048
  3. DISOPYRAMIDE [Concomitant]
     Dosage: 1 DF, TID
  4. MULTIPLE VITAMINS [Concomitant]
  5. OMEGA 3 COMPLEX [Concomitant]
  6. MOVICOL [Concomitant]
     Indication: CONSTIPATION
  7. PARACETAMOL [Concomitant]
     Indication: PAIN

REACTIONS (13)
  - Dyspnoea [Recovering/Resolving]
  - Agitation [Recovered/Resolved]
  - Urinary retention [Recovering/Resolving]
  - Dizziness [Recovering/Resolving]
  - Headache [Recovering/Resolving]
  - Malaise [Recovering/Resolving]
  - Constipation [Not Recovered/Not Resolved]
  - Nausea [Recovering/Resolving]
  - Insomnia [Recovered/Resolved]
  - Confusional state [Recovered/Resolved]
  - Vitamin D decreased [Unknown]
  - Drug dependence [Not Recovered/Not Resolved]
  - Withdrawal syndrome [Recovered/Resolved]
